FAERS Safety Report 22072550 (Version 1)
Quarter: 2023Q1

REPORT INFORMATION
  Report Type: Spontaneous
  Country: HR (occurrence: HR)
  Receive Date: 20230308
  Receipt Date: 20230308
  Transmission Date: 20230418
  Serious: Yes (Hospitalization, Other)
  Sender: FDA-Public Use
  Company Number: HR-009507513-2303HRV001308

PATIENT
  Age: 80 Year
  Sex: Female

DRUGS (3)
  1. KEYTRUDA [Suspect]
     Active Substance: PEMBROLIZUMAB
     Indication: Lung squamous cell carcinoma metastatic
     Dosage: 200 MILLIGRAM;  FIRST CYCLE
     Dates: start: 20210420
  2. KEYTRUDA [Suspect]
     Active Substance: PEMBROLIZUMAB
     Dosage: 10TH CYCLE
     Dates: start: 20211105, end: 20211105
  3. KEYTRUDA [Suspect]
     Active Substance: PEMBROLIZUMAB
     Dosage: UNK
     Dates: start: 20220121

REACTIONS (6)
  - Syncope [Unknown]
  - Asthenia [Unknown]
  - Body temperature increased [Unknown]
  - Hypophysitis [Unknown]
  - Pneumonitis [Unknown]
  - Weight increased [Unknown]

NARRATIVE: CASE EVENT DATE: 20210101
